FAERS Safety Report 25543580 (Version 1)
Quarter: 2025Q3

REPORT INFORMATION
  Report Type: Spontaneous
  Country: US (occurrence: US)
  Receive Date: 20250711
  Receipt Date: 20250711
  Transmission Date: 20251021
  Serious: Yes (Other)
  Sender: PFIZER
  Company Number: US-PFIZER INC-202500138833

PATIENT
  Sex: Female

DRUGS (3)
  1. LORLATINIB [Suspect]
     Active Substance: LORLATINIB
     Dates: start: 2021
  2. LORLATINIB [Suspect]
     Active Substance: LORLATINIB
  3. LORLATINIB [Suspect]
     Active Substance: LORLATINIB

REACTIONS (1)
  - Malignant neoplasm progression [Unknown]
